FAERS Safety Report 4862837-4 (Version None)
Quarter: 2005Q4

REPORT INFORMATION
  Report Type: 
  Country: None (occurrence: None)
  Receive Date: 20051221
  Receipt Date: 20011206
  Transmission Date: 20060501
  Serious: Yes (Death, Hospitalization)
  Sender: FDA-Public Use
  Company Number: US-BRISTOL-MYERS SQUIBB COMPANY-11618477

PATIENT
  Age: 86 Year
  Sex: Female
  Weight: 50 kg

DRUGS (14)
  1. TEQUIN [Suspect]
     Indication: PNEUMONIA
     Route: 048
     Dates: start: 20011101, end: 20011111
  2. ALTACE [Concomitant]
     Route: 048
  3. DIDROCAL [Concomitant]
     Dosage: DOSAGE FORM = TABLET AT BEDTIME
     Route: 048
  4. PROZAC [Concomitant]
     Route: 048
  5. LASIX [Concomitant]
     Route: 048
  6. K-DUR 20 [Concomitant]
     Route: 048
  7. LACTAID [Concomitant]
     Dosage: DOSAGE FORM = TABLET WITH MEALS
     Route: 048
  8. DIGOXIN [Concomitant]
     Dosage: ALTERNATING WITH 0.125 MG EVERY 2 DAYS.
     Route: 048
  9. ZAROXOLYN [Concomitant]
     Route: 048
  10. CEPHULAC [Concomitant]
  11. NITROGLYCERIN [Concomitant]
     Dosage: 8 TO 22 DAILY.
  12. DECONSAL [Concomitant]
     Route: 048
  13. ASPIRIN [Concomitant]
     Route: 048
  14. TYLENOL [Concomitant]
     Route: 048

REACTIONS (14)
  - ASTHENIA [None]
  - ATELECTASIS [None]
  - BUNDLE BRANCH BLOCK [None]
  - CARDIAC FAILURE [None]
  - CARDIOMEGALY [None]
  - DEATH [None]
  - DEHYDRATION [None]
  - DIABETIC COMA [None]
  - ELECTROLYTE IMBALANCE [None]
  - HYPERGLYCAEMIA [None]
  - HYPEROSMOLAR STATE [None]
  - LOSS OF CONSCIOUSNESS [None]
  - RESPIRATORY FAILURE [None]
  - TACHYCARDIA [None]
